FAERS Safety Report 6690103-3 (Version None)
Quarter: 2010Q2

REPORT INFORMATION
  Report Type: 
  Country: None (occurrence: None)
  Receive Date: 20100412
  Receipt Date: 20091228
  Transmission Date: 20101027
  Serious: No
  Sender: FDA-Public Use
  Company Number: 1000010996

PATIENT
  Age: 35 Year
  Sex: Male

DRUGS (1)
  1. BYSTOLIC [Suspect]
     Dosage: 10 MG (10 MG, 1 IN 1 D), ORAL
     Route: 048

REACTIONS (1)
  - CHEST PAIN [None]
